FAERS Safety Report 6165715-6 (Version None)
Quarter: 2009Q2

REPORT INFORMATION
  Report Type: 
  Country: None (occurrence: None)
  Receive Date: 20090423
  Receipt Date: 20090422
  Transmission Date: 20091009
  Serious: Yes (Hospitalization)
  Sender: FDA-Public Use
  Company Number: FR-WYE-G03548609

PATIENT
  Sex: Female

DRUGS (5)
  1. ADVIL [Suspect]
     Dosage: UNKNOWN
     Route: 048
     Dates: start: 20081217, end: 20081218
  2. GESTODENE [Concomitant]
     Dosage: UNKNOWN
     Route: 048
     Dates: start: 20081218
  3. ETHINYLESTRADIOL [Concomitant]
     Dosage: UNKNOWN
     Route: 048
     Dates: start: 20081218
  4. MIOREL [Suspect]
     Dosage: UNKNOWN
     Route: 048
     Dates: start: 20081217, end: 20081221
  5. STRESAM [Suspect]
     Dosage: UNKNOWN
     Route: 048
     Dates: start: 20081217, end: 20081224

REACTIONS (9)
  - CHEST X-RAY ABNORMAL [None]
  - COUGH [None]
  - EOSINOPHILIC CELLULITIS [None]
  - INFECTION [None]
  - LIVER FUNCTION TEST ABNORMAL [None]
  - PYREXIA [None]
  - RASH PAPULAR [None]
  - SKIN LESION [None]
  - URTICARIA [None]
